FAERS Safety Report 4673507-X (Version None)
Quarter: 2005Q2

REPORT INFORMATION
  Report Type: 
  Country: None (occurrence: None)
  Receive Date: 20050523
  Receipt Date: 20050512
  Transmission Date: 20051028
  Serious: Yes (Hospitalization, Other)
  Sender: FDA-Public Use
  Company Number: 2005-05-0741

PATIENT
  Age: 65 Year
  Sex: Male
  Weight: 69 kg

DRUGS (5)
  1. PEG-INTRON [Suspect]
     Indication: HEPATITIS C
     Dosage: 100 MCG QW SUBCUTANEOUS
     Route: 058
     Dates: start: 20041222, end: 20050425
  2. REBETOL [Suspect]
     Indication: HEPATITIS C
     Dosage: SEE IMAGE, ORAL
     Route: 048
     Dates: start: 20041222, end: 20050118
  3. REBETOL [Suspect]
     Indication: HEPATITIS C
     Dosage: SEE IMAGE, ORAL
     Route: 048
     Dates: start: 20050119, end: 20050308
  4. REBETOL [Suspect]
     Indication: HEPATITIS C
     Dosage: SEE IMAGE, ORAL
     Route: 048
     Dates: start: 20041222, end: 20050428
  5. REBETOL [Suspect]
     Indication: HEPATITIS C
     Dosage: SEE IMAGE, ORAL
     Route: 048
     Dates: start: 20050322, end: 20050428

REACTIONS (10)
  - ABDOMINAL PAIN UPPER [None]
  - BACK PAIN [None]
  - BRONCHITIS [None]
  - CONSTIPATION [None]
  - INTERVERTEBRAL DISCITIS [None]
  - MYELITIS [None]
  - NEOPLASM MALIGNANT [None]
  - PARALYSIS [None]
  - PNEUMONIA [None]
  - SPINAL CORD INJURY THORACIC [None]
